FAERS Safety Report 18841527 (Version 1)
Quarter: 2021Q1

REPORT INFORMATION
  Report Type: Spontaneous
  Country: RO (occurrence: RO)
  Receive Date: 20210203
  Receipt Date: 20210203
  Transmission Date: 20210419
  Serious: Yes (Hospitalization, Other)
  Sender: FDA-Public Use
  Company Number: RO-SA-2020SA375179

PATIENT
  Age: 56 Year
  Sex: Female

DRUGS (9)
  1. FONDAPARINUX SODIUM. [Interacting]
     Active Substance: FONDAPARINUX SODIUM
     Indication: THROMBOSIS PROPHYLAXIS
     Dosage: 7.5 MG, PER DAY
     Route: 065
  2. ACETYLSALICYLIC ACID [Interacting]
     Active Substance: ASPIRIN
     Indication: ACUTE MYOCARDIAL INFARCTION
  3. DABIGATRAN [Suspect]
     Active Substance: DABIGATRAN
     Indication: ACUTE MYOCARDIAL INFARCTION
  4. CLOPIDOGREL BISULFATE. [Suspect]
     Active Substance: CLOPIDOGREL BISULFATE
     Indication: THROMBOSIS PROPHYLAXIS
     Dosage: UNK
     Route: 065
  5. FONDAPARINUX SODIUM. [Interacting]
     Active Substance: FONDAPARINUX SODIUM
     Dosage: 2.5 MG, PER DAY
     Route: 065
  6. DABIGATRAN [Suspect]
     Active Substance: DABIGATRAN
     Indication: THROMBOSIS PROPHYLAXIS
     Dosage: 150 MG, BID
     Route: 016
  7. ACETYLSALICYLIC ACID [Interacting]
     Active Substance: ASPIRIN
     Indication: THROMBOSIS PROPHYLAXIS
     Dosage: UNK
     Route: 065
  8. CLOPIDOGREL BISULFATE. [Interacting]
     Active Substance: CLOPIDOGREL BISULFATE
     Indication: ACUTE MYOCARDIAL INFARCTION
  9. ELTROMBOPAG [Suspect]
     Active Substance: ELTROMBOPAG
     Indication: IMMUNE THROMBOCYTOPENIA
     Dosage: UNK
     Route: 065

REACTIONS (7)
  - Platelet count decreased [Recovered/Resolved]
  - Pain in extremity [Recovered/Resolved]
  - Haemoglobin decreased [Recovered/Resolved]
  - Deep vein thrombosis [Recovered/Resolved]
  - Drug ineffective [Recovered/Resolved]
  - Oedema peripheral [Recovered/Resolved]
  - Menorrhagia [Recovered/Resolved]
